FAERS Safety Report 9321808 (Version 1)
Quarter: 2013Q2

REPORT INFORMATION
  Report Type: Spontaneous
  Country: ES (occurrence: ES)
  Receive Date: 20130531
  Receipt Date: 20130531
  Transmission Date: 20140414
  Serious: Yes (Hospitalization)
  Sender: FDA-Public Use
  Company Number: ES-009507513-1305ESP013916

PATIENT
  Age: 20 Year
  Sex: Female

DRUGS (5)
  1. NUVARING [Suspect]
     Indication: CONTRACEPTION
     Dosage: ETONOGESTREL 0.12 MG(+) ETHINYL ESTRADIOL 0.015 MG
     Route: 067
     Dates: start: 20130506
  2. ANTIMICROBIAL (UNSPECIFIED) [Suspect]
     Indication: ACUTE TONSILLITIS
     Dosage: UNK
     Route: 042
     Dates: start: 20130513, end: 20130517
  3. CITALOPRAM [Concomitant]
     Indication: DEPRESSION
     Dosage: 15 MG, QD
     Route: 048
  4. DEPAKINE [Concomitant]
     Indication: DEPRESSION
     Dosage: 200 MG, BID, 200 MG IN THE MORNING AND 200 MG IN THE NIGHT
     Route: 048
  5. RIVOTRIL [Concomitant]
     Indication: DEPRESSION
     Dosage: 0.5 MG, QD
     Route: 048

REACTIONS (2)
  - Acute tonsillitis [Recovering/Resolving]
  - Vulvovaginal candidiasis [Recovering/Resolving]
